FAERS Safety Report 4932890-8 (Version None)
Quarter: 2006Q1

REPORT INFORMATION
  Report Type: 
  Country: None (occurrence: None)
  Receive Date: 20060306
  Receipt Date: 20060227
  Transmission Date: 20060701
  Serious: Yes (Hospitalization)
  Sender: FDA-Public Use
  Company Number: SE-JNJFOC-20060300298

PATIENT
  Age: 75 Year
  Sex: Male

DRUGS (3)
  1. IPREN [Suspect]
     Indication: TOOTH EXTRACTION
  2. ALFADIL BPH [Concomitant]
     Route: 048
  3. LANSOPRAZOLE [Concomitant]
     Route: 048

REACTIONS (2)
  - ATRIAL FIBRILLATION [None]
  - STOMATITIS [None]
